FAERS Safety Report 5199985-8 (Version None)
Quarter: 2007Q1

REPORT INFORMATION
  Report Type: 
  Country: None (occurrence: None)
  Receive Date: 20070105
  Receipt Date: 20070102
  Transmission Date: 20070707
  Serious: Yes (Hospitalization)
  Sender: FDA-Public Use
  Company Number: 2007CG00007

PATIENT
  Age: 85 Year
  Sex: Male

DRUGS (6)
  1. NEXIUM [Suspect]
     Indication: GASTROOESOPHAGEAL REFLUX DISEASE
     Route: 048
     Dates: start: 20060601, end: 20060922
  2. HYDROCORTISONE [Suspect]
     Indication: SUBDURAL HAEMATOMA
     Route: 048
     Dates: start: 20060623, end: 20060922
  3. ACETAMINOPHEN W/ PROPOXYPHENE HCL [Concomitant]
     Route: 048
  4. DIFFU K [Concomitant]
     Route: 048
  5. LEXOMIL [Concomitant]
     Route: 048
  6. OMIX [Concomitant]
     Route: 048

REACTIONS (7)
  - ALANINE AMINOTRANSFERASE INCREASED [None]
  - ASPARTATE AMINOTRANSFERASE INCREASED [None]
  - BLOOD ALKALINE PHOSPHATASE INCREASED [None]
  - FALL [None]
  - GAMMA-GLUTAMYLTRANSFERASE INCREASED [None]
  - JAUNDICE [None]
  - SUBDURAL HAEMATOMA [None]
